FAERS Safety Report 9362982 (Version 5)
Quarter: 2014Q1

REPORT INFORMATION
  Report Type: Report from Study
  Country: BR (occurrence: BR)
  Receive Date: 20130624
  Receipt Date: 20140123
  Transmission Date: 20141002
  Serious: Yes (Hospitalization, Other)
  Sender: FDA-Public Use
  Company Number: BR-ROCHE-669818

PATIENT
  Age: 58 Year
  Sex: Female
  Weight: 65 kg

DRUGS (12)
  1. MABTHERA [Suspect]
     Indication: RHEUMATOID ARTHRITIS
     Route: 042
     Dates: start: 201203, end: 201211
  2. ACTEMRA [Suspect]
     Indication: RHEUMATOID ARTHRITIS
     Dosage: FORM: INFUSION, STRENGTH: 20 MG/ML
     Route: 042
     Dates: start: 20090807, end: 20120104
  3. ACTEMRA [Suspect]
     Route: 042
  4. PREDNISONE [Concomitant]
     Route: 065
  5. ACETAMINOPHEN [Concomitant]
     Dosage: FREQUENCY: NOT REGULARLY
     Route: 065
  6. METHOTREXATE [Concomitant]
     Route: 065
  7. ATENOLOL [Concomitant]
     Route: 065
  8. METICORTEN [Concomitant]
     Route: 065
  9. MIOSAN [Concomitant]
     Route: 065
  10. OMEGA 3 [Concomitant]
  11. DIOVAN [Concomitant]
     Indication: HYPERTENSION
  12. CORTISONE [Concomitant]

REACTIONS (25)
  - Ulcer haemorrhage [Recovered/Resolved]
  - Foot deformity [Recovered/Resolved]
  - Abasia [Recovering/Resolving]
  - Arthropathy [Not Recovered/Not Resolved]
  - Bunion [Recovered/Resolved]
  - Anaemia [Recovering/Resolving]
  - Blood cholesterol increased [Not Recovered/Not Resolved]
  - Arthralgia [Recovering/Resolving]
  - Hypocalcaemia [Recovered/Resolved]
  - Hypoaesthesia [Recovered/Resolved]
  - Pain [Recovered/Resolved]
  - Arthritis [Not Recovered/Not Resolved]
  - Arthralgia [Recovering/Resolving]
  - Pain in extremity [Not Recovered/Not Resolved]
  - Tendonitis [Recovered/Resolved]
  - Fall [Unknown]
  - Gait disturbance [Recovered/Resolved]
  - Joint dislocation [Recovering/Resolving]
  - Rheumatoid arthritis [Unknown]
  - Swelling [Recovered/Resolved]
  - Tremor [Recovered/Resolved]
  - Muscle twitching [Recovered/Resolved]
  - Arthralgia [Not Recovered/Not Resolved]
  - Malaise [Recovered/Resolved]
  - Rheumatoid arthritis [Recovered/Resolved]
